FAERS Safety Report 6215101-5 (Version None)
Quarter: 2009Q2

REPORT INFORMATION
  Report Type: 
  Country: None (occurrence: None)
  Receive Date: 20090604
  Receipt Date: 20080319
  Transmission Date: 20091009
  Serious: Yes (Other)
  Sender: FDA-Public Use
  Company Number: US-BAYER-200811126BCC

PATIENT
  Age: 82 Year
  Sex: Female

DRUGS (1)
  1. ALKA-SELTZER EFFERVESCENT COLD-ORANGE ZEST [Suspect]
     Indication: NASOPHARYNGITIS
     Dosage: TOTAL DAILY DOSE: 1 DF  UNIT DOSE: 1 DF
     Route: 048

REACTIONS (3)
  - ANGINA PECTORIS [None]
  - MALAISE [None]
  - SOMNOLENCE [None]
